FAERS Safety Report 7923748-0 (Version None)
Quarter: 2011Q4

REPORT INFORMATION
  Report Type: 
  Country: None (occurrence: None)
  Receive Date: 20111117
  Receipt Date: 20110208
  Transmission Date: 20120403
  Serious: No
  Sender: FDA-Public Use
  Company Number: US-AMGEN-USASP2011007555

PATIENT
  Age: 70 Year
  Sex: Female
  Weight: 45.351 kg

DRUGS (9)
  1. MULTIVITAMIN                       /00097801/ [Concomitant]
  2. ZANTAC                             /00550801/ [Concomitant]
     Dosage: 300 MG, UNK
  3. METOPROLOL TARTRATE [Concomitant]
     Dosage: 100 MG, UNK
  4. XANAX [Concomitant]
     Dosage: .25 MG, UNK
  5. SALINEX NASAL [Concomitant]
  6. ENBREL [Suspect]
     Indication: PRODUCT USED FOR UNKNOWN INDICATION
     Dosage: 50 MG, QWK
  7. PROCARDIA [Concomitant]
     Dosage: 10 MG, UNK
  8. PAROXETINE HCL [Concomitant]
     Dosage: 10 MG, UNK
  9. PROBIOTIC FEMINA [Concomitant]

REACTIONS (2)
  - GASTROINTESTINAL DISORDER [None]
  - RASH [None]
